FAERS Safety Report 6556648-1 (Version None)
Quarter: 2010Q1

REPORT INFORMATION
  Report Type: 
  Country: None (occurrence: None)
  Receive Date: 20100125
  Receipt Date: 20100118
  Transmission Date: 20100710
  Serious: Yes (Death, Other)
  Sender: FDA-Public Use
  Company Number: 2009-194664-NL

PATIENT
  Age: 29 Year
  Sex: Female

DRUGS (4)
  1. MIRTAZAPINE [Suspect]
     Indication: DEPRESSION
     Dosage: 30 MG;QD;PO; 45 MG;QD;PO
     Route: 048
     Dates: start: 20080630
  2. METOCLOPRAMIDE [Concomitant]
  3. OMEPRAZOLE [Concomitant]
  4. ALBUTEROL [Concomitant]

REACTIONS (1)
  - DIABETIC KETOACIDOSIS [None]
